FAERS Safety Report 13351958 (Version 1)
Quarter: 2017Q1

REPORT INFORMATION
  Report Type: Spontaneous
  Country: US (occurrence: US)
  Receive Date: 20170320
  Receipt Date: 20170320
  Transmission Date: 20170429
  Serious: No
  Sender: FDA-Public Use
  Company Number: US-SA-2016SA037432

PATIENT
  Sex: Male

DRUGS (2)
  1. NASACORT ALLERGY 24HR [Suspect]
     Active Substance: TRIAMCINOLONE ACETONIDE
     Indication: NASAL OEDEMA
     Dosage: STARTED MONTH AGO
     Route: 065
  2. NASACORT ALLERGY 24HR [Suspect]
     Active Substance: TRIAMCINOLONE ACETONIDE
     Indication: NASAL OEDEMA
     Dosage: RESTARTED WITH 60 SPRAY
     Route: 065

REACTIONS (7)
  - Chills [Unknown]
  - Parosmia [Unknown]
  - Feeling abnormal [Unknown]
  - Anxiety [Unknown]
  - Incorrect drug administration duration [Unknown]
  - Hyperhidrosis [Unknown]
  - Burning sensation [Unknown]
